FAERS Safety Report 9379470 (Version 1)
Quarter: 2013Q2

REPORT INFORMATION
  Report Type: Spontaneous
  Country: IL (occurrence: None)
  Receive Date: 20130627
  Receipt Date: 20130627
  Transmission Date: 20140414
  Serious: Yes (Death)
  Sender: FDA-Public Use
  Company Number: 20130302

PATIENT
  Age: 73 Year
  Sex: Male

DRUGS (3)
  1. VENOFER [Suspect]
     Indication: ANAEMIA
     Dosage: IN 150 ML OVER,  45 MIN
  2. EPOETIN BETA [Concomitant]
  3. FUROSEMIDE [Concomitant]

REACTIONS (2)
  - Pneumonia [None]
  - Sepsis [None]
